FAERS Safety Report 16704917 (Version 2)
Quarter: 2019Q4

REPORT INFORMATION
  Report Type: Spontaneous
  Country: PL (occurrence: PL)
  Receive Date: 20190814
  Receipt Date: 20191008
  Transmission Date: 20200122
  Serious: Yes (Death, Hospitalization)
  Sender: FDA-Public Use
  Company Number: PL-ABBVIE-19K-129-2889329-00

PATIENT
  Age: 57 Year
  Sex: Male

DRUGS (9)
  1. VENCLYXTO [Suspect]
     Active Substance: VENETOCLAX
     Indication: CHRONIC LYMPHOCYTIC LEUKAEMIA
     Route: 048
     Dates: start: 201809
  2. VENCLYXTO [Suspect]
     Active Substance: VENETOCLAX
     Route: 048
  3. VENCLYXTO [Suspect]
     Active Substance: VENETOCLAX
     Route: 048
  4. BISEPTOL [Concomitant]
     Active Substance: SULFAMETHOXAZOLE\TRIMETHOPRIM
     Indication: INFECTION PROPHYLAXIS
     Route: 048
  5. VENCLYXTO [Suspect]
     Active Substance: VENETOCLAX
     Route: 048
  6. VENCLYXTO [Suspect]
     Active Substance: VENETOCLAX
     Route: 048
     Dates: end: 20190808
  7. HASCOVIR [Concomitant]
     Indication: INFECTION PROPHYLAXIS
     Route: 048
  8. ENARENAL [Concomitant]
     Active Substance: ENALAPRIL
     Indication: HYPERTENSION
     Route: 048
  9. AGEN [Concomitant]
     Active Substance: AMLODIPINE BESYLATE
     Indication: HYPERTENSION
     Route: 048

REACTIONS (5)
  - Cardiac arrest [Fatal]
  - Haemolysis [Recovered/Resolved]
  - Pneumonia [Unknown]
  - Haemolysis [Unknown]
  - Respiratory tract infection [Recovered/Resolved]

NARRATIVE: CASE EVENT DATE: 20190415
